FAERS Safety Report 4466100-5 (Version None)
Quarter: 2004Q3

REPORT INFORMATION
  Report Type: 
  Country: None (occurrence: None)
  Receive Date: 20040929
  Receipt Date: 20040929
  Transmission Date: 20050211
  Serious: Yes (Hospitalization)
  Sender: FDA-Public Use
  Company Number: None

PATIENT
  Sex: Female
  Weight: 95.709 kg

DRUGS (7)
  1. VALSARTAN 80 MG NOVARTIS [Suspect]
     Indication: CARDIAC FAILURE CONGESTIVE
     Dosage: 80 MG BID PO
     Route: 048
     Dates: start: 20040401, end: 20040908
  2. ADVAIR DISKUS 100/50 [Concomitant]
  3. NEXIUM [Concomitant]
  4. ASPIRIN [Concomitant]
  5. COREG [Concomitant]
  6. GABAPENTIN [Concomitant]
  7. COUMADIN [Concomitant]

REACTIONS (4)
  - ANGIONEUROTIC OEDEMA [None]
  - CARDIAC FAILURE CONGESTIVE [None]
  - DYSPNOEA [None]
  - WEIGHT INCREASED [None]
